FAERS Safety Report 7371864-7 (Version None)
Quarter: 2011Q1

REPORT INFORMATION
  Report Type: 
  Country: None (occurrence: None)
  Receive Date: 20110324
  Receipt Date: 20110317
  Transmission Date: 20110831
  Serious: Yes (Other)
  Sender: FDA-Public Use
  Company Number: US-SANOFI-AVENTIS-2010SA058153

PATIENT
  Age: 84 Year
  Sex: Female
  Weight: 67.13 kg

DRUGS (11)
  1. XANAX [Concomitant]
  2. MULTAQ [Suspect]
     Indication: ATRIAL FIBRILLATION
     Route: 048
     Dates: start: 20100927, end: 20100928
  3. MULTAQ [Suspect]
     Route: 048
     Dates: start: 20101001
  4. FOLTX [Concomitant]
  5. MULTAQ [Suspect]
     Route: 048
     Dates: start: 20100928, end: 20100928
  6. WARFARIN [Concomitant]
  7. AMBIEN [Concomitant]
  8. MAGNESIUM [Concomitant]
  9. METOPROLOL [Concomitant]
  10. MULTAQ [Suspect]
     Route: 048
  11. VERAPAMIL [Concomitant]
     Dates: end: 20100101

REACTIONS (8)
  - ATRIAL FIBRILLATION [None]
  - JOINT SWELLING [None]
  - TENDONITIS [None]
  - MICTURITION URGENCY [None]
  - TINNITUS [None]
  - DIZZINESS [None]
  - UNDERDOSE [None]
  - BONE PAIN [None]
